FAERS Safety Report 6903006-3 (Version None)
Quarter: 2010Q3

REPORT INFORMATION
  Report Type: 
  Country: None (occurrence: None)
  Receive Date: 20100803
  Receipt Date: 20080825
  Transmission Date: 20110219
  Serious: Yes (Other)
  Sender: FDA-Public Use
  Company Number: US-PFIZER INC-2008071216

PATIENT
  Sex: Female
  Weight: 63.63 kg

DRUGS (3)
  1. LYRICA [Suspect]
     Dates: start: 20071005
  2. HUMALOG [Concomitant]
  3. LANTUS [Concomitant]

REACTIONS (2)
  - EYE HAEMORRHAGE [None]
  - NEUROPATHY PERIPHERAL [None]
